FAERS Safety Report 4479174-2 (Version None)
Quarter: 2004Q3

REPORT INFORMATION
  Report Type: 
  Country: None (occurrence: None)
  Receive Date: 20040923
  Receipt Date: 20040603
  Transmission Date: 20050211
  Serious: No
  Sender: FDA-Public Use
  Company Number: USA040668938

PATIENT
  Age: 74 Year
  Sex: Female
  Weight: 68 kg

DRUGS (2)
  1. FORTEO [Suspect]
     Indication: OSTEOPOROSIS
     Dates: start: 20040519
  2. BETAMETHASONE [Concomitant]

REACTIONS (11)
  - ABDOMINAL PAIN [None]
  - ABNORMAL DREAMS [None]
  - ANAL DISCOMFORT [None]
  - ASTHENIA [None]
  - CONSTIPATION [None]
  - FAECES DISCOLOURED [None]
  - FEELING ABNORMAL [None]
  - FLATULENCE [None]
  - HERPES SIMPLEX [None]
  - LOOSE STOOLS [None]
  - RECTAL DISCHARGE [None]
